FAERS Safety Report 19954045 (Version 1)
Quarter: 2021Q4

REPORT INFORMATION
  Report Type: Spontaneous
  Country: US (occurrence: US)
  Receive Date: 20211011
  Receipt Date: 20211011
  Transmission Date: 20220303
  Serious: Yes (Hospitalization)
  Sender: FDA-Public Use
  Company Number: None

PATIENT
  Sex: Female

DRUGS (1)
  1. CAPECITABINE [Suspect]
     Active Substance: CAPECITABINE
     Indication: Pancreatic carcinoma
     Dosage: TAKE 3 TABLETS WITH ONE 150 MG TABLET BY MOUTH TWICE DAILY FOR 42 DAYS, NO DAY OFF
     Route: 048
     Dates: start: 20210923

REACTIONS (1)
  - Medical procedure [None]
